FAERS Safety Report 9948121 (Version 1)
Quarter: 2014Q1

REPORT INFORMATION
  Report Type: Report from Study
  Country: US (occurrence: US)
  Receive Date: 20140303
  Receipt Date: 20140303
  Transmission Date: 20141002
  Serious: No
  Sender: FDA-Public Use
  Company Number: US-ABBVIE-13P-163-1058932-00

PATIENT
  Age: 62 Year
  Sex: Female

DRUGS (6)
  1. HUMIRA [Suspect]
     Indication: RHEUMATOID ARTHRITIS
     Dates: start: 201207
  2. LEVOTHYROXINE [Concomitant]
     Indication: HYPOTHYROIDISM
     Route: 048
  3. ZOLOFT [Concomitant]
     Indication: BIPOLAR DISORDER
  4. ZYPREXA [Concomitant]
     Indication: BIPOLAR DISORDER
     Route: 048
  5. DEXEDRINE [Concomitant]
     Indication: BIPOLAR DISORDER
  6. METHOTREXATE [Concomitant]
     Indication: RHEUMATOID ARTHRITIS
     Dosage: WEEKLY

REACTIONS (1)
  - Weight increased [Not Recovered/Not Resolved]
